FAERS Safety Report 7561820-8 (Version None)
Quarter: 2011Q2

REPORT INFORMATION
  Report Type: 
  Country: None (occurrence: None)
  Receive Date: 20110621
  Receipt Date: 20110609
  Transmission Date: 20111010
  Serious: Yes (Hospitalization)
  Sender: FDA-Public Use
  Company Number: DE-GENENTECH-320069

PATIENT
  Sex: Male
  Weight: 18.4 kg

DRUGS (2)
  1. CEFOTAXIME [Concomitant]
     Indication: PRODUCT USED FOR UNKNOWN INDICATION
  2. NUTROPIN AQ [Suspect]
     Indication: EMPTY SELLA SYNDROME
     Dosage: 0.06 MG, QD
     Route: 058
     Dates: start: 20101220

REACTIONS (2)
  - CEREBRAL HAEMORRHAGE [None]
  - CONVULSION [None]
